FAERS Safety Report 11069211 (Version 1)
Quarter: 2015Q2

REPORT INFORMATION
  Report Type: Spontaneous
  Country: SE (occurrence: SE)
  Receive Date: 20150427
  Receipt Date: 20150427
  Transmission Date: 20150821
  Serious: Yes (Other)
  Sender: FDA-Public Use
  Company Number: SE-TEVA-557938ISR

PATIENT
  Age: 72 Year
  Sex: Female

DRUGS (1)
  1. ATORVASTATIN 40 MG TABLETS [Suspect]
     Active Substance: ATORVASTATIN
     Route: 048

REACTIONS (1)
  - Blood lactate dehydrogenase increased [Recovered/Resolved]
